FAERS Safety Report 9613653 (Version 1)
Quarter: 2013Q4

REPORT INFORMATION
  Report Type: Report from Study
  Country: US (occurrence: US)
  Receive Date: 20131010
  Receipt Date: 20131010
  Transmission Date: 20140711
  Serious: Yes (Other)
  Sender: FDA-Public Use
  Company Number: US-ABBVIE-13P-163-1153008-00

PATIENT
  Age: 65 Year
  Sex: Female
  Weight: 58.11 kg

DRUGS (6)
  1. HUMIRA [Suspect]
     Indication: RHEUMATOID ARTHRITIS
     Dates: start: 2010
  2. HUMIRA [Suspect]
     Indication: CROHN^S DISEASE
  3. COLAZOLE [Concomitant]
     Indication: CROHN^S DISEASE
  4. PROGESTERONE [Concomitant]
     Indication: HORMONE REPLACEMENT THERAPY
     Route: 061
  5. ESTROGEN [Concomitant]
     Indication: HORMONE REPLACEMENT THERAPY
     Route: 061
  6. VITAMIN D3 [Concomitant]
     Indication: INFLAMMATION

REACTIONS (4)
  - Arthritis [Recovering/Resolving]
  - Neuralgia [Recovering/Resolving]
  - Joint swelling [Not Recovered/Not Resolved]
  - Rheumatoid arthritis [Not Recovered/Not Resolved]
